FAERS Safety Report 5017179-3 (Version None)
Quarter: 2006Q2

REPORT INFORMATION
  Report Type: 
  Country: None (occurrence: None)
  Receive Date: 20060525
  Receipt Date: 20060502
  Transmission Date: 20061013
  Serious: Yes (Other)
  Sender: FDA-Public Use
  Company Number: US200603006842

PATIENT
  Age: 64 Year
  Sex: Male

DRUGS (5)
  1. CIALIS [Suspect]
     Indication: ERECTILE DYSFUNCTION
     Dosage: 20 MG
     Dates: start: 20050716
  2. LIPITOR [Concomitant]
  3. LOPRESSOR HCT /USA/(HYDROCHLOROTHIAZIDE, METOPROLOL TARTRATE) [Concomitant]
  4. AVAPRO [Concomitant]
  5. ACIPHEX [Concomitant]

REACTIONS (1)
  - MACULAR HOLE [None]
